FAERS Safety Report 4895011-6 (Version None)
Quarter: 2006Q1

REPORT INFORMATION
  Report Type: 
  Country: None (occurrence: None)
  Receive Date: 20060130
  Receipt Date: 20050825
  Transmission Date: 20060701
  Serious: No
  Sender: FDA-Public Use
  Company Number: US-BRISTOL-MYERS SQUIBB COMPANY-13090600

PATIENT
  Age: 31 Year
  Sex: Female
  Weight: 122 kg

DRUGS (3)
  1. METFORMIN HCL [Suspect]
     Indication: DIABETES MELLITUS
     Route: 048
  2. RISPERDAL [Interacting]
     Indication: SUICIDAL IDEATION
     Route: 048
  3. PROZAC [Interacting]
     Dates: start: 20050606, end: 20050628

REACTIONS (3)
  - DRUG INTERACTION [None]
  - FUNGAL SKIN INFECTION [None]
  - HEADACHE [None]
